FAERS Safety Report 8606922-X (Version None)
Quarter: 2012Q3

REPORT INFORMATION
  Report Type: 
  Country: None (occurrence: None)
  Receive Date: 20120820
  Receipt Date: 20120815
  Transmission Date: 20120928
  Serious: Yes (Hospitalization, Other)
  Sender: FDA-Public Use
  Company Number: US-GILEAD-2012-0058917

PATIENT
  Age: 76 Year
  Sex: Male

DRUGS (11)
  1. SPIRONOLACTONE [Concomitant]
  2. NITRATES [Concomitant]
  3. BENAZEPRIL HYDROCHLORIDE [Concomitant]
  4. RANEXA [Suspect]
     Indication: ANGINA PECTORIS
     Dosage: 500 MG, UNK
  5. ZETIA [Concomitant]
  6. IMDUR [Concomitant]
  7. CRESTOR [Concomitant]
  8. RANEXA [Suspect]
     Dosage: 500 MG, BID
     Route: 048
     Dates: start: 20111101
  9. PREDNISONE [Concomitant]
  10. FLOMAX [Concomitant]
  11. COREG [Concomitant]

REACTIONS (5)
  - HAEMOGLOBIN DECREASED [None]
  - ECONOMIC PROBLEM [None]
  - INAPPROPRIATE SCHEDULE OF DRUG ADMINISTRATION [None]
  - MYOCARDIAL INFARCTION [None]
  - THROMBOCYTOPENIA [None]
